FAERS Safety Report 5354137-3 (Version None)
Quarter: 2007Q2

REPORT INFORMATION
  Report Type: 
  Country: None (occurrence: None)
  Receive Date: 20070612
  Receipt Date: 20070611
  Transmission Date: 20071010
  Serious: Yes (Hospitalization)
  Sender: FDA-Public Use
  Company Number: CZ-BRISTOL-MYERS SQUIBB COMPANY-13810486

PATIENT
  Age: 52 Year
  Sex: Female
  Weight: 99 kg

DRUGS (8)
  1. CISPLATIN [Suspect]
     Indication: SMALL CELL LUNG CANCER STAGE UNSPECIFIED
     Route: 042
     Dates: start: 20070330
  2. IRINOTECAN HCL [Suspect]
     Indication: SMALL CELL LUNG CANCER STAGE UNSPECIFIED
     Route: 042
     Dates: start: 20070330
  3. LETROX [Concomitant]
     Route: 048
  4. CILAZAPRIL [Concomitant]
     Route: 048
     Dates: start: 20010101
  5. MILURIT [Concomitant]
     Route: 048
     Dates: start: 20050101
  6. RITMONORM [Concomitant]
     Route: 048
     Dates: start: 20070314
  7. ZOLOFT [Concomitant]
     Route: 048
     Dates: start: 20060401
  8. NICERGOLINE [Concomitant]
     Route: 048
     Dates: start: 20060401

REACTIONS (3)
  - DIARRHOEA [None]
  - VERTIGO [None]
  - VOMITING [None]
